FAERS Safety Report 21303808 (Version 1)
Quarter: 2022Q3

REPORT INFORMATION
  Report Type: Other
  Country: US (occurrence: US)
  Receive Date: 20220907
  Receipt Date: 20220907
  Transmission Date: 20221027
  Serious: No
  Sender: FDA-Public Use
  Company Number: US-LEADIANT BIOSCIENCES, INC.-2021STPI000253

PATIENT
  Sex: Male

DRUGS (1)
  1. MATULANE [Suspect]
     Active Substance: PROCARBAZINE HYDROCHLORIDE
     Indication: Non-Hodgkin^s lymphoma
     Dosage: 50 MILLIGRAM, TAKE 4 CAPSULES (200 MG TOTAL), DAILY, ON DAYS 2-8, OF EACH 2-3 WEEKS
     Route: 048
     Dates: start: 20210525

REACTIONS (5)
  - Nausea [Unknown]
  - Asthenia [Unknown]
  - Chills [Unknown]
  - Decreased appetite [Unknown]
  - Parosmia [Unknown]
